FAERS Safety Report 6410985-X (Version None)
Quarter: 2009Q4

REPORT INFORMATION
  Report Type: 
  Country: None (occurrence: None)
  Receive Date: 20091022
  Receipt Date: 20091013
  Transmission Date: 20100525
  Serious: Yes (Hospitalization)
  Sender: FDA-Public Use
  Company Number: DE-AMGEN-US369531

PATIENT
  Age: 47 Year
  Sex: Female

DRUGS (2)
  1. ENBREL [Suspect]
     Indication: PSORIASIS
     Route: 058
     Dates: start: 20080601, end: 20090101
  2. ENBREL [Suspect]
     Indication: PSORIATIC ARTHROPATHY

REACTIONS (6)
  - APHASIA [None]
  - CEREBRAL ARTERITIS [None]
  - CEREBRAL HAEMORRHAGE [None]
  - PARTIAL SEIZURES [None]
  - SUBARACHNOID HAEMORRHAGE [None]
  - VASOSPASM [None]
